FAERS Safety Report 17462906 (Version 3)
Quarter: 2020Q2

REPORT INFORMATION
  Report Type: Spontaneous
  Country: US (occurrence: US)
  Receive Date: 20200226
  Receipt Date: 20200415
  Transmission Date: 20200713
  Serious: No
  Sender: FDA-Public Use
  Company Number: US-ASTRAZENECA-2020SE23407

PATIENT
  Age: 950 Month
  Sex: Male

DRUGS (4)
  1. SYMBICORT [Suspect]
     Active Substance: BUDESONIDE\FORMOTEROL FUMARATE DIHYDRATE
     Indication: TRAUMATIC LUNG INJURY
     Dosage: 160/4.5 MCG UNKNOWN, 120 DOSES UNKNOWN
     Route: 055
  2. DUONEB [Concomitant]
     Active Substance: ALBUTEROL SULFATE\IPRATROPIUM BROMIDE
     Dosage: THREE TIMES A DAY
     Route: 065
  3. SYMBICORT [Suspect]
     Active Substance: BUDESONIDE\FORMOTEROL FUMARATE DIHYDRATE
     Indication: CHRONIC OBSTRUCTIVE PULMONARY DISEASE
     Dosage: 160/4.5 MCG UNKNOWN, 120 DOSES UNKNOWN
     Route: 055
  4. PULMICORT FLEXHALER [Suspect]
     Active Substance: BUDESONIDE
     Dosage: UNKNOWN DOSE USED DAILY
     Route: 055
     Dates: start: 201808

REACTIONS (8)
  - Dyspnoea [Unknown]
  - Gait disturbance [Unknown]
  - Drug delivery system malfunction [Unknown]
  - Product dose omission [Not Recovered/Not Resolved]
  - Loss of personal independence in daily activities [Unknown]
  - Intentional product misuse [Not Recovered/Not Resolved]
  - Incorrect dose administered by device [Not Recovered/Not Resolved]
  - Back pain [Unknown]

NARRATIVE: CASE EVENT DATE: 201712
